FAERS Safety Report 10079160 (Version 2)
Quarter: 2014Q3

REPORT INFORMATION
  Report Type: Spontaneous
  Country: FR (occurrence: FR)
  Receive Date: 20140415
  Receipt Date: 20140908
  Transmission Date: 20150326
  Serious: Yes (Hospitalization, Other)
  Sender: FDA-Public Use
  Company Number: FR-PFIZER INC-2014103490

PATIENT
  Age: 62 Year
  Sex: Male

DRUGS (9)
  1. ARGANOVA [Suspect]
     Active Substance: ARGATROBAN
     Indication: HEPARIN-INDUCED THROMBOCYTOPENIA
     Dosage: UNK
     Route: 041
     Dates: start: 201312
  2. ORBENINE [Suspect]
     Active Substance: CLOXACILLIN SODIUM
     Dosage: UNK
     Route: 065
     Dates: start: 20140201, end: 201403
  3. EUPANTOL [Concomitant]
     Active Substance: PANTOPRAZOLE SODIUM
     Dosage: 40 MG, 1X/DAY
     Route: 048
  4. CORDARONE [Concomitant]
     Active Substance: AMIODARONE HYDROCHLORIDE
     Dosage: 200 MG, 1X/DAY
     Route: 048
  5. CIFLOX [Suspect]
     Active Substance: CIPROFLOXACIN
     Dosage: UNK
     Route: 048
     Dates: start: 20140201, end: 201403
  6. XATRAL [Concomitant]
     Active Substance: ALFUZOSIN
     Dosage: 10 MG, UNK
     Route: 048
  7. BISOPROLOL FUMARATE. [Concomitant]
     Active Substance: BISOPROLOL FUMARATE
     Dosage: 2.5 MG, 1X/DAY
     Route: 048
  8. KARDEGIC [Concomitant]
     Active Substance: ASPIRIN LYSINE
     Dosage: 75 MG, UNK
     Route: 048
  9. MERONEM [Suspect]
     Active Substance: MEROPENEM
     Dosage: UNK
     Route: 048
     Dates: start: 20140127

REACTIONS (8)
  - Oliguria [Not Recovered/Not Resolved]
  - Oedema [Not Recovered/Not Resolved]
  - Pancreatitis acute [Unknown]
  - Staphylococcal sepsis [Unknown]
  - Renal failure acute [Not Recovered/Not Resolved]
  - Hypotension [Not Recovered/Not Resolved]
  - Post infection glomerulonephritis [Not Recovered/Not Resolved]
  - Renal impairment [Not Recovered/Not Resolved]

NARRATIVE: CASE EVENT DATE: 20140113
